FAERS Safety Report 5829788-X (Version None)
Quarter: 2008Q3

REPORT INFORMATION
  Report Type: 
  Country: None (occurrence: None)
  Receive Date: 20080722
  Receipt Date: 20070518
  Transmission Date: 20090109
  Serious: Yes (Hospitalization)
  Sender: FDA-Public Use
  Company Number: 2007BI011171

PATIENT
  Age: 63 Year
  Sex: Female

DRUGS (1)
  1. AVONEX [Suspect]
     Indication: MULTIPLE SCLEROSIS
     Dosage: 30 UG;QW;IM
     Route: 030
     Dates: start: 20070423, end: 20070509

REACTIONS (6)
  - CHEST PAIN [None]
  - DEPRESSION [None]
  - HYPOAESTHESIA [None]
  - JOINT SWELLING [None]
  - MUSCLE SPASTICITY [None]
  - OEDEMA PERIPHERAL [None]
